FAERS Safety Report 15208159 (Version 1)
Quarter: 2018Q3

REPORT INFORMATION
  Report Type: Spontaneous
  Country: US (occurrence: US)
  Receive Date: 20180727
  Receipt Date: 20180727
  Transmission Date: 20181010
  Serious: No
  Sender: FDA-Public Use
  Company Number: US-009507513-1807USA010615

PATIENT
  Sex: Male
  Weight: 117.91 kg

DRUGS (5)
  1. LIPITOR [Suspect]
     Active Substance: ATORVASTATIN CALCIUM
     Indication: BLOOD CHOLESTEROL
     Dosage: 10MG ONE CAPSULE BY MOUTH DAILY
     Route: 048
  2. LIPITOR [Suspect]
     Active Substance: ATORVASTATIN CALCIUM
     Indication: FAMILIAL RISK FACTOR
  3. PRAVACHOL [Suspect]
     Active Substance: PRAVASTATIN SODIUM
  4. ZOCOR [Suspect]
     Active Substance: SIMVASTATIN
     Route: 048
  5. CRESTOR [Suspect]
     Active Substance: ROSUVASTATIN CALCIUM

REACTIONS (7)
  - Blood triglycerides abnormal [Unknown]
  - Muscle disorder [Unknown]
  - Drug ineffective [Unknown]
  - Fall [Unknown]
  - Gait disturbance [Unknown]
  - Adverse event [Unknown]
  - Inappropriate schedule of drug administration [Unknown]
